FAERS Safety Report 9732025 (Version 1)
Quarter: 2013Q4

REPORT INFORMATION
  Report Type: Spontaneous
  Country: US (occurrence: US)
  Receive Date: 20131205
  Receipt Date: 20131205
  Transmission Date: 20140711
  Serious: No
  Sender: FDA-Public Use
  Company Number: US-009507513-1312USA001818

PATIENT
  Age: 27 Year
  Sex: Female

DRUGS (3)
  1. CLARITIN-D-24 [Suspect]
     Indication: NASOPHARYNGITIS
     Dosage: 10 MG, QD
     Route: 048
  2. IBUPROFEN [Concomitant]
     Indication: PAIN
     Dosage: UNK, UNKNOWN
  3. IBUPROFEN [Concomitant]
     Indication: HEADACHE

REACTIONS (2)
  - Nasal dryness [Unknown]
  - Discomfort [Unknown]
